FAERS Safety Report 4730582-1 (Version None)
Quarter: 2005Q3

REPORT INFORMATION
  Report Type: 
  Country: None (occurrence: None)
  Receive Date: 20050725
  Receipt Date: 20050315
  Transmission Date: 20060218
  Serious: No
  Sender: FDA-Public Use
  Company Number: USA050393247

PATIENT
  Age: 55 Year
  Sex: Male
  Weight: 123 kg

DRUGS (2)
  1. STRATTERA [Suspect]
     Indication: ATTENTION DEFICIT/HYPERACTIVITY DISORDER
     Dosage: 40 MG DAY
     Dates: start: 20050201, end: 20050317
  2. SOMA [Concomitant]

REACTIONS (9)
  - ANOREXIA [None]
  - DEHYDRATION [None]
  - DRUG SCREEN POSITIVE [None]
  - FATIGUE [None]
  - FEELING ABNORMAL [None]
  - LIP DRY [None]
  - PALPITATIONS [None]
  - STRESS [None]
  - THIRST [None]
